FAERS Safety Report 5148356-9 (Version None)
Quarter: 2006Q4

REPORT INFORMATION
  Report Type: 
  Country: None (occurrence: None)
  Receive Date: 20061106
  Receipt Date: 20061026
  Transmission Date: 20070319
  Serious: Yes (Other)
  Sender: FDA-Public Use
  Company Number: 2006131921

PATIENT

DRUGS (3)
  1. LIPITOR [Suspect]
     Dosage: 10 MG ORAL
     Route: 048
     Dates: end: 20061010
  2. NORVASC [Suspect]
     Dosage: 5 MG ORAL
     Route: 048
     Dates: end: 20061020
  3. DRUG, UNSPECIFIED [Concomitant]

REACTIONS (6)
  - CONDITION AGGRAVATED [None]
  - HEPATIC STEATOSIS [None]
  - HEPATITIS [None]
  - HYPERTHERMIA [None]
  - JAUNDICE CHOLESTATIC [None]
  - THERAPY NON-RESPONDER [None]
